FAERS Safety Report 6383111-3 (Version None)
Quarter: 2009Q3

REPORT INFORMATION
  Report Type: 
  Country: None (occurrence: None)
  Receive Date: 20090930
  Receipt Date: 20090925
  Transmission Date: 20100115
  Serious: Yes (Death, Congenital Anomaly)
  Sender: FDA-Public Use
  Company Number: RU-MERCK-0909RUS00002

PATIENT
  Age: 19 Year
  Sex: Male

DRUGS (6)
  1. CANCIDAS [Suspect]
     Indication: CHOLANGITIS SUPPURATIVE
     Route: 051
  2. CANCIDAS [Suspect]
     Indication: SEPSIS
     Route: 051
  3. PRIMAXIN [Concomitant]
     Indication: CHOLANGITIS SUPPURATIVE
     Route: 065
  4. PRIMAXIN [Concomitant]
     Indication: SEPSIS
     Route: 065
  5. FLUCONAZOLE [Concomitant]
     Indication: CHOLANGITIS SUPPURATIVE
     Route: 065
  6. FLUCONAZOLE [Concomitant]
     Indication: SEPSIS
     Route: 065

REACTIONS (1)
  - SEPTIC SHOCK [None]
